FAERS Safety Report 11565138 (Version 1)
Quarter: 2015Q3

REPORT INFORMATION
  Report Type: Spontaneous
  Country: US (occurrence: US)
  Receive Date: 20150916
  Receipt Date: 20150916
  Transmission Date: 20151125
  Serious: No
  Sender: FDA-Public Use
  Company Number: US-ELI_LILLY_AND_COMPANY-US200904002898

PATIENT
  Sex: Female
  Weight: 52.61 kg

DRUGS (12)
  1. CALCIUM [Concomitant]
     Active Substance: CALCIUM
  2. LEXAPRO [Concomitant]
     Active Substance: ESCITALOPRAM OXALATE
  3. DIGOXIN. [Concomitant]
     Active Substance: DIGOXIN
  4. BABY ASPIRIN [Concomitant]
     Active Substance: ASPIRIN
  5. VITAMIN C [Concomitant]
     Active Substance: ASCORBIC ACID
  6. ATACAND [Concomitant]
     Active Substance: CANDESARTAN CILEXETIL
  7. MULTIVITAMIN [Concomitant]
     Active Substance: VITAMINS
  8. RECLAST [Concomitant]
     Active Substance: ZOLEDRONIC ACID
  9. FOLIC ACID. [Concomitant]
     Active Substance: FOLIC ACID
  10. VITAMIN D [Concomitant]
     Active Substance: CHOLECALCIFEROL
  11. VITAMIN E [Concomitant]
     Active Substance: .ALPHA.-TOCOPHEROL
  12. FORTEO [Suspect]
     Active Substance: TERIPARATIDE
     Indication: OSTEOPOROSIS
     Dosage: 20 UG, DAILY (1/D)
     Dates: end: 200901

REACTIONS (2)
  - Uterine leiomyoma [Recovering/Resolving]
  - Uterine enlargement [Recovering/Resolving]
